FAERS Safety Report 5730218-7 (Version None)
Quarter: 2008Q2

REPORT INFORMATION
  Report Type: 
  Country: None (occurrence: None)
  Receive Date: 20080505
  Receipt Date: 20080505
  Transmission Date: 20081010
  Serious: Yes (Death)
  Sender: FDA-Public Use
  Company Number: None

PATIENT
  Sex: Female
  Weight: 13.6079 kg

DRUGS (1)
  1. GENERIC LICE SHAMPOO [Suspect]
     Indication: LICE INFESTATION
     Dosage: 2 TIMES WITH SHAMPOO
     Dates: start: 20050301, end: 20050701

REACTIONS (1)
  - BRAIN NEOPLASM [None]
